FAERS Safety Report 8518659 (Version 2)
Quarter: 2014Q2

REPORT INFORMATION
  Report Type: Spontaneous
  Country: US (occurrence: US)
  Receive Date: 20120417
  Receipt Date: 20140509
  Transmission Date: 20141212
  Serious: Yes (Hospitalization, Other)
  Sender: FDA-Public Use
  Company Number: US-ASTRAZENECA-2011SE47894

PATIENT
  Age: 83 Year
  Sex: Female
  Weight: 85.7 kg

DRUGS (12)
  1. NEXIUM [Suspect]
     Indication: GASTROOESOPHAGEAL REFLUX DISEASE
     Dosage: EVERYDAY
     Route: 048
  2. NEXIUM [Suspect]
     Indication: GASTROOESOPHAGEAL REFLUX DISEASE
     Dosage: TWO PER DAY
     Route: 048
  3. NEXIUM [Suspect]
     Indication: GASTROOESOPHAGEAL REFLUX DISEASE
     Route: 048
     Dates: end: 201404
  4. NEXIUM [Suspect]
     Indication: GASTROOESOPHAGEAL REFLUX DISEASE
     Route: 048
     Dates: start: 201404
  5. ERYTHROMYCIN [Suspect]
     Route: 065
  6. ADVAIR [Concomitant]
     Indication: CHRONIC OBSTRUCTIVE PULMONARY DISEASE
     Dosage: 250/50 BID
     Route: 055
  7. SYNTHROID [Concomitant]
     Indication: THYROXINE DECREASED
     Dosage: 112MCG DAILY
     Route: 048
     Dates: start: 2006
  8. OXYGEN [Concomitant]
     Indication: CHRONIC OBSTRUCTIVE PULMONARY DISEASE
     Dosage: 2L QHS
     Route: 055
     Dates: start: 2012
  9. PREDNISONE [Concomitant]
     Indication: ASTHMA
     Route: 048
     Dates: start: 2013
  10. OCCUVITE [Concomitant]
     Indication: EYE DISORDER
     Dosage: 2TAB BID
     Route: 048
     Dates: start: 2004
  11. VITAMIN D [Concomitant]
     Dosage: DAILY
     Route: 048
     Dates: start: 2014
  12. VITAMIN B12 [Concomitant]
     Dosage: DAILY
     Route: 048
     Dates: start: 2014

REACTIONS (27)
  - Blindness [Unknown]
  - Impaired gastric emptying [Unknown]
  - Heart rate decreased [Unknown]
  - Diarrhoea [Unknown]
  - Gait disturbance [Unknown]
  - Back pain [Unknown]
  - Dyspnoea [Unknown]
  - Chest pain [Unknown]
  - Urinary tract infection [Unknown]
  - Aphagia [Unknown]
  - Weight decreased [Unknown]
  - Pain [Unknown]
  - Chronic obstructive pulmonary disease [Unknown]
  - Intervertebral disc protrusion [Unknown]
  - Asthma [Unknown]
  - Body height decreased [Unknown]
  - Gait disturbance [Unknown]
  - Ingrowing nail [Unknown]
  - Tendonitis [Unknown]
  - Pain in extremity [Unknown]
  - Tremor [Unknown]
  - Gastrooesophageal reflux disease [Unknown]
  - Vomiting [Unknown]
  - Retching [Unknown]
  - Extra dose administered [Unknown]
  - Drug ineffective [Unknown]
  - Off label use [Unknown]
